FAERS Safety Report 22593188 (Version 1)
Quarter: 2023Q2

REPORT INFORMATION
  Report Type: Spontaneous
  Country: None (occurrence: US)
  Receive Date: 20230613
  Receipt Date: 20230613
  Transmission Date: 20230722
  Serious: Yes (Other)
  Sender: FDA-Public Use
  Company Number: US-WES Pharma Inc-2142634

PATIENT
  Sex: Female

DRUGS (3)
  1. OXYCODONE HYDROCHLORIDE [Suspect]
     Active Substance: OXYCODONE HYDROCHLORIDE
     Indication: Product used for unknown indication
     Route: 065
  2. AYVAKIT [Suspect]
     Active Substance: AVAPRITINIB
     Route: 065
     Dates: start: 20230202
  3. SOMA [Suspect]
     Active Substance: CARISOPRODOL
     Route: 065

REACTIONS (12)
  - Cataract [Unknown]
  - Bone disorder [Unknown]
  - Vision blurred [Unknown]
  - Swelling of eyelid [Unknown]
  - Lacrimation increased [Unknown]
  - Gait disturbance [Unknown]
  - Somnolence [Unknown]
  - Retinal haemorrhage [Unknown]
  - Pain in extremity [Unknown]
  - Back pain [Unknown]
  - Pain [Unknown]
  - Eye haemorrhage [Unknown]
